FAERS Safety Report 9164081 (Version 2)
Quarter: 2013Q1

REPORT INFORMATION
  Report Type: Spontaneous
  Country: NL (occurrence: NL)
  Receive Date: 20130314
  Receipt Date: 20130320
  Transmission Date: 20140127
  Serious: Yes (Other)
  Sender: FDA-Public Use
  Company Number: NL-009507513-1303NLD005263

PATIENT
  Age: 36 Year
  Sex: Female
  Weight: 64 kg

DRUGS (1)
  1. TRYPTIZOL [Suspect]
     Indication: FIBROMYALGIA
     Dosage: TIMES PER 1 DF
     Route: 048
     Dates: start: 199708, end: 200906

REACTIONS (1)
  - Urinary retention [Not Recovered/Not Resolved]
